FAERS Safety Report 23226920 (Version 1)
Quarter: 2023Q4

REPORT INFORMATION
  Report Type: Other
  Country: CA (occurrence: None)
  Receive Date: 20231124
  Receipt Date: 20231124
  Transmission Date: 20240110
  Serious: Yes (Hospitalization)
  Sender: FDA-Public Use
  Company Number: CA-ROCHE-3457577

PATIENT
  Sex: Female

DRUGS (1)
  1. OCREVUS [Suspect]
     Active Substance: OCRELIZUMAB
     Indication: Relapsing-remitting multiple sclerosis
     Dosage: 300 MG AT DAY 0 AND 14, THEN 600 MG EVERY 6 MONTHS
     Route: 042
     Dates: start: 20210209

REACTIONS (6)
  - Pneumonia [Unknown]
  - Calcinosis [Unknown]
  - Tooth disorder [Unknown]
  - Sinus headache [Unknown]
  - Oropharyngeal pain [Unknown]
  - Balance disorder [Unknown]
